FAERS Safety Report 5959564-9 (Version None)
Quarter: 2008Q4

REPORT INFORMATION
  Report Type: 
  Country: None (occurrence: None)
  Receive Date: 20081120
  Receipt Date: 20081031
  Transmission Date: 20090506
  Serious: Yes (Hospitalization)
  Sender: FDA-Public Use
  Company Number: PHHY2008RU22493

PATIENT
  Age: 9 Year
  Sex: Female

DRUGS (3)
  1. TRILEPTAL [Suspect]
     Indication: EPILEPSY
     Dosage: 600 MG
  2. TRILEPTAL [Suspect]
     Dosage: 150 MG
     Route: 048
     Dates: start: 20080915
  3. DEPAKOTE [Concomitant]

REACTIONS (6)
  - DIZZINESS [None]
  - NAUSEA [None]
  - POOR QUALITY DRUG ADMINISTERED [None]
  - RESPIRATORY ARREST [None]
  - RESPIRATORY RATE DECREASED [None]
  - TREMOR [None]
